FAERS Safety Report 25454495 (Version 1)
Quarter: 2025Q2

REPORT INFORMATION
  Report Type: Other
  Country: FR (occurrence: FR)
  Receive Date: 20250619
  Receipt Date: 20250619
  Transmission Date: 20250717
  Serious: Yes (Death)
  Sender: ALVOGEN
  Company Number: FR-ALVOGEN-2025098153

PATIENT
  Age: 72 Year

DRUGS (1)
  1. DAPSONE [Suspect]
     Active Substance: DAPSONE
     Indication: Pemphigus

REACTIONS (2)
  - Cardiac failure [Fatal]
  - Anaemia [Fatal]
